FAERS Safety Report 5186529-X (Version None)
Quarter: 2006Q4

REPORT INFORMATION
  Report Type: 
  Country: None (occurrence: None)
  Receive Date: 20061213
  Receipt Date: 20061127
  Transmission Date: 20070319
  Serious: No
  Sender: FDA-Public Use
  Company Number: TPA2006A02119

PATIENT
  Age: 82 Year
  Sex: Female
  Weight: 50.8029 kg

DRUGS (3)
  1. ROZEREM [Suspect]
     Indication: INSOMNIA
     Dosage: 8 MG, QHS, PER ORAL
     Route: 048
     Dates: start: 20061122, end: 20061123
  2. SYNTHROID [Concomitant]
  3. DAILY VITAMIN (VITAMINS) [Concomitant]

REACTIONS (6)
  - DIZZINESS [None]
  - HANGOVER [None]
  - INSOMNIA [None]
  - MALAISE [None]
  - OESOPHAGEAL PAIN [None]
  - SOMNOLENCE [None]
